FAERS Safety Report 19399283 (Version 1)
Quarter: 2021Q2

REPORT INFORMATION
  Report Type: Report from Study
  Country: DE (occurrence: DE)
  Receive Date: 20210610
  Receipt Date: 20210610
  Transmission Date: 20210717
  Serious: Yes (Other)
  Sender: FDA-Public Use
  Company Number: DE-ACCORD-227694

PATIENT
  Age: 43 Year
  Sex: Female

DRUGS (17)
  1. SPASMEX [Concomitant]
  2. AMLODIPINE [Concomitant]
     Active Substance: AMLODIPINE BESYLATE
  3. PREGABALIN. [Suspect]
     Active Substance: PREGABALIN
     Indication: PRODUCT USED FOR UNKNOWN INDICATION
     Route: 065
     Dates: start: 2018, end: 2018
  4. OCREVUS [Suspect]
     Active Substance: OCRELIZUMAB
     Indication: PRIMARY PROGRESSIVE MULTIPLE SCLEROSIS
     Route: 042
     Dates: start: 20200428
  5. ENALAPRIL [Concomitant]
     Active Substance: ENALAPRIL
     Dosage: DAYS
  6. OCREVUS [Suspect]
     Active Substance: OCRELIZUMAB
     Indication: PRIMARY PROGRESSIVE MULTIPLE SCLEROSIS
     Route: 042
     Dates: start: 20181023
  7. METFORMIN [Concomitant]
     Active Substance: METFORMIN HYDROCHLORIDE
     Dosage: 1?0?1
  8. SIMVASTATIN. [Concomitant]
     Active Substance: SIMVASTATIN
  9. ENALAPRIL [Concomitant]
     Active Substance: ENALAPRIL
  10. OCREVUS [Suspect]
     Active Substance: OCRELIZUMAB
     Indication: PRIMARY PROGRESSIVE MULTIPLE SCLEROSIS
     Route: 042
     Dates: start: 20191010
  11. ACETYLSALICYLIC ACID [Concomitant]
     Active Substance: ASPIRIN
  12. OCREVUS [Suspect]
     Active Substance: OCRELIZUMAB
     Indication: PRIMARY PROGRESSIVE MULTIPLE SCLEROSIS
     Route: 042
     Dates: start: 20180423
  13. LEVOTHYROXINE. [Suspect]
     Active Substance: LEVOTHYROXINE
     Indication: PRODUCT USED FOR UNKNOWN INDICATION
     Dosage: 25 MICROGRAM
     Route: 065
  14. OCREVUS [Suspect]
     Active Substance: OCRELIZUMAB
     Indication: PRIMARY PROGRESSIVE MULTIPLE SCLEROSIS
     Route: 042
     Dates: start: 20190426
  15. METFORMIN [Concomitant]
     Active Substance: METFORMIN HYDROCHLORIDE
     Dosage: 1?0?1
  16. BISOPROLOL [Concomitant]
     Active Substance: BISOPROLOL
  17. ENALAPRIL [Concomitant]
     Active Substance: ENALAPRIL

REACTIONS (46)
  - Seasonal allergy [Unknown]
  - Initial insomnia [Recovered/Resolved]
  - Inflammatory marker increased [Recovered/Resolved]
  - Drug dependence [Recovered/Resolved]
  - Gait disturbance [Not Recovered/Not Resolved]
  - Burning sensation [Not Recovered/Not Resolved]
  - Micturition urgency [Recovered/Resolved]
  - Hypoaesthesia [Not Recovered/Not Resolved]
  - Walking disability [Recovered/Resolved]
  - Cardiac disorder [Unknown]
  - Abdominal discomfort [Recovered/Resolved]
  - Choking sensation [Recovered/Resolved]
  - Exercise tolerance decreased [Recovered/Resolved]
  - Cystitis noninfective [Recovered/Resolved]
  - Palpitations [Recovered/Resolved]
  - Dysmenorrhoea [Recovered/Resolved]
  - Bladder dysfunction [Recovered/Resolved]
  - Thyroid mass [Unknown]
  - Musculoskeletal stiffness [Not Recovered/Not Resolved]
  - Muscle spasticity [Not Recovered/Not Resolved]
  - Toothache [Recovered/Resolved]
  - Drug ineffective [Unknown]
  - Dysaesthesia [Not Recovered/Not Resolved]
  - Muscle spasms [Recovered/Resolved]
  - Muscle tightness [Recovering/Resolving]
  - Nasopharyngitis [Recovered/Resolved]
  - Neuralgia [Not Recovered/Not Resolved]
  - Anxiety [Recovered/Resolved]
  - Vision blurred [Recovered/Resolved]
  - Back pain [Recovering/Resolving]
  - Panic attack [Recovered/Resolved]
  - Flushing [Recovered/Resolved]
  - Discomfort [Recovered/Resolved]
  - Multiple sclerosis [Not Recovered/Not Resolved]
  - Malaise [Recovered/Resolved]
  - Fear of falling [Recovered/Resolved]
  - Accidental overdose [Unknown]
  - Tremor [Not Recovered/Not Resolved]
  - Fatigue [Recovered/Resolved]
  - Hypertension [Not Recovered/Not Resolved]
  - Feeling hot [Not Recovered/Not Resolved]
  - Crying [Recovering/Resolving]
  - Headache [Recovered/Resolved]
  - Nausea [Recovered/Resolved]
  - Blood pressure increased [Recovered/Resolved]
  - Dizziness [Recovered/Resolved]

NARRATIVE: CASE EVENT DATE: 2018
